FAERS Safety Report 9753255 (Version 2)
Quarter: 2014Q1

REPORT INFORMATION
  Report Type: Report from Study
  Country: US (occurrence: US)
  Receive Date: 20131213
  Receipt Date: 20140108
  Transmission Date: 20141002
  Serious: Yes (Hospitalization)
  Sender: FDA-Public Use
  Company Number: US-ASTRAZENECA-2013SE89578

PATIENT
  Age: 65 Year
  Sex: Female
  Weight: 78.9 kg

DRUGS (14)
  1. NEXIUM [Suspect]
     Indication: GASTROOESOPHAGEAL REFLUX DISEASE
     Route: 048
     Dates: start: 2003, end: 2010
  2. NEXIUM [Suspect]
     Indication: OESOPHAGEAL DISORDER
     Route: 048
     Dates: start: 2003, end: 2010
  3. NEXIUM [Suspect]
     Indication: GASTROOESOPHAGEAL REFLUX DISEASE
     Route: 048
     Dates: start: 2010
  4. NEXIUM [Suspect]
     Indication: OESOPHAGEAL DISORDER
     Route: 048
     Dates: start: 2010
  5. CYMBALTA [Concomitant]
     Indication: ARTHRALGIA
     Dosage: 30 MG WITH 60 MG TO EQUAL 90 MG DAILY
     Route: 048
     Dates: start: 2011
  6. MIDODRINE [Concomitant]
     Indication: ORTHOSTATIC HYPOTENSION
     Route: 048
     Dates: start: 2012
  7. TRAZASTATIN SODIUM [Concomitant]
     Indication: BLOOD CHOLESTEROL ABNORMAL
     Route: 048
     Dates: start: 2013
  8. GABAPENTIN [Concomitant]
     Indication: NEUROPATHY PERIPHERAL
     Route: 048
     Dates: start: 2013
  9. ALPRAZOLAM [Concomitant]
     Indication: SLEEP DISORDER
     Route: 048
     Dates: start: 2009
  10. ALPRAZOLAM [Concomitant]
     Indication: DEPRESSION
     Route: 048
     Dates: start: 2009
  11. ATELVIA [Concomitant]
     Indication: OSTEOPOROSIS
     Route: 048
     Dates: start: 2011
  12. VITAMIN D [Concomitant]
     Indication: OSTEOPOROSIS
  13. CALCIUM [Concomitant]
     Indication: OSTEOPOROSIS
  14. NAPROXEN [Concomitant]
     Indication: MIGRAINE
     Dosage: PRN
     Dates: start: 2013

REACTIONS (12)
  - Dyspepsia [Recovered/Resolved]
  - Osteoporosis [Not Recovered/Not Resolved]
  - Migraine [Not Recovered/Not Resolved]
  - Orthostatic hypotension [Recovered/Resolved]
  - Dizziness [Recovered/Resolved]
  - Depression [Not Recovered/Not Resolved]
  - Dysphonia [Unknown]
  - Throat irritation [Unknown]
  - Dysphagia [Unknown]
  - Intentional drug misuse [Unknown]
  - Off label use [Recovered/Resolved]
  - Drug dose omission [Unknown]
